FAERS Safety Report 26154836 (Version 1)
Quarter: 2025Q4

REPORT INFORMATION
  Report Type: Spontaneous
  Country: US (occurrence: US)
  Receive Date: 20251215
  Receipt Date: 20251215
  Transmission Date: 20260117
  Serious: No
  Sender: SPECGX
  Company Number: US-SPECGX-T202501742

PATIENT
  Sex: Female
  Weight: 57 kg

DRUGS (1)
  1. FENTANYL TRANSDERMAL SYSTEM [Suspect]
     Active Substance: FENTANYL
     Indication: Pain
     Dosage: 50 MCG/HR
     Route: 062
     Dates: end: 20251020

REACTIONS (9)
  - Skin irritation [Unknown]
  - Moisture-associated skin damage [Unknown]
  - Application site hypersensitivity [Not Recovered/Not Resolved]
  - Drug intolerance [Unknown]
  - Drug withdrawal syndrome [Unknown]
  - Rash [Unknown]
  - Product use issue [Unknown]
  - Product dose omission issue [Unknown]
  - Product adhesion issue [Unknown]
